FAERS Safety Report 24260867 (Version 1)
Quarter: 2024Q3

REPORT INFORMATION
  Report Type: Spontaneous
  Country: US (occurrence: US)
  Receive Date: 20240828
  Receipt Date: 20240828
  Transmission Date: 20241016
  Serious: No
  Sender: NOVARTIS
  Company Number: US-002147023-NVSC2024US173850

PATIENT
  Age: 47 Year
  Sex: Female
  Weight: 50.8 kg

DRUGS (1)
  1. KISQALI [Suspect]
     Active Substance: RIBOCICLIB
     Indication: Breast cancer
     Dosage: 600 MG, QD (TAKE 3 TABS (600 MG) DAILY FOR 21 DAYS ON 7 DAYS OFF)
     Route: 048
     Dates: start: 20240708

REACTIONS (1)
  - White blood cell count decreased [Unknown]
